FAERS Safety Report 6026267-4 (Version None)
Quarter: 2008Q4

REPORT INFORMATION
  Report Type: 
  Country: None (occurrence: None)
  Receive Date: 20081230
  Receipt Date: 20081114
  Transmission Date: 20090506
  Serious: Yes (Death)
  Sender: FDA-Public Use
  Company Number: 2008JP005216

PATIENT
  Age: 68 Year
  Sex: Female

DRUGS (2)
  1. PROGRAF [Suspect]
     Indication: LIVER TRANSPLANT
  2. STEROIDS [Concomitant]

REACTIONS (10)
  - ABSCESS [None]
  - ARRHYTHMIA [None]
  - ATRIOVENTRICULAR BLOCK COMPLETE [None]
  - BACTERAEMIA [None]
  - BRADYCARDIA [None]
  - CARDIAC ARREST [None]
  - CARDIOMYOPATHY [None]
  - DRUG RESISTANCE [None]
  - ENDOCARDIAL DISEASE [None]
  - SEPSIS [None]
